FAERS Safety Report 4949488-8 (Version None)
Quarter: 2006Q1

REPORT INFORMATION
  Report Type: 
  Country: None (occurrence: None)
  Receive Date: 20060321
  Receipt Date: 20060310
  Transmission Date: 20060701
  Serious: Yes (Hospitalization)
  Sender: FDA-Public Use
  Company Number: FR-BRISTOL-MYERS SQUIBB COMPANY-13310602

PATIENT
  Sex: Male

DRUGS (4)
  1. REYATAZ [Suspect]
     Indication: HIV TEST POSITIVE
  2. VIDEX EC [Concomitant]
  3. EPIVIR [Concomitant]
  4. NORVIR [Concomitant]

REACTIONS (1)
  - NEPHROLITHIASIS [None]
